FAERS Safety Report 4646867-3 (Version None)
Quarter: 2005Q2

REPORT INFORMATION
  Report Type: 
  Country: None (occurrence: None)
  Receive Date: 20050331
  Receipt Date: 20050114
  Transmission Date: 20051028
  Serious: No
  Sender: FDA-Public Use
  Company Number: 05P-163-0286763-00

PATIENT
  Age: 43 Year
  Sex: Female
  Weight: 63.5036 kg

DRUGS (4)
  1. HUMIRA [Suspect]
     Indication: RHEUMATOID ARTHRITIS
     Dosage: 40 MG, 1 IN 2 WK, SUBCUTANEOUS
     Route: 058
     Dates: start: 20040601
  2. NORTRIPTYLINE HCL [Concomitant]
  3. OTC ANTI-HISTAMINES [Concomitant]
  4. BUDESONIDE [Concomitant]

REACTIONS (2)
  - BRONCHITIS [None]
  - PHARYNGITIS STREPTOCOCCAL [None]
